FAERS Safety Report 18704171 (Version 1)
Quarter: 2021Q1

REPORT INFORMATION
  Report Type: Spontaneous
  Country: PT (occurrence: PT)
  Receive Date: 20210106
  Receipt Date: 20210106
  Transmission Date: 20210419
  Serious: Yes (Other)
  Sender: FDA-Public Use
  Company Number: PT-AUROBINDO-AUR-APL-2020-064380

PATIENT
  Age: 47 Year
  Sex: Male

DRUGS (4)
  1. LATANOPROST. [Suspect]
     Active Substance: LATANOPROST
     Indication: OPEN ANGLE GLAUCOMA
     Dosage: UNK
     Route: 065
  2. BRIMONIDINE [Suspect]
     Active Substance: BRIMONIDINE TARTRATE
     Indication: OPEN ANGLE GLAUCOMA
     Dosage: UNK
     Route: 065
  3. TIMOLOL. [Suspect]
     Active Substance: TIMOLOL
     Indication: OPEN ANGLE GLAUCOMA
     Dosage: UNK
     Route: 065
  4. BRINZOLAMIDE [Suspect]
     Active Substance: BRINZOLAMIDE
     Indication: OPEN ANGLE GLAUCOMA
     Dosage: UNK
     Route: 065

REACTIONS (1)
  - Ulcerative keratitis [Recovered/Resolved]
